FAERS Safety Report 16960145 (Version 2)
Quarter: 2020Q1

REPORT INFORMATION
  Report Type: Spontaneous
  Country: IT (occurrence: IT)
  Receive Date: 20191025
  Receipt Date: 20200109
  Transmission Date: 20200409
  Serious: Yes (Other)
  Sender: FDA-Public Use
  Company Number: IT-SUN PHARMACEUTICAL INDUSTRIES LTD-2019RR-225224

PATIENT
  Age: 69 Year
  Sex: Male

DRUGS (1)
  1. OLANZAPINE. [Suspect]
     Active Substance: OLANZAPINE
     Indication: SCHIZOPHRENIA
     Dosage: 10 MILLIGRAMS, DAILY
     Route: 048
     Dates: start: 20190810, end: 20191007

REACTIONS (3)
  - Therapy non-responder [Unknown]
  - Insomnia [Unknown]
  - Agitation [Unknown]

NARRATIVE: CASE EVENT DATE: 20191007
